FAERS Safety Report 19722268 (Version 1)
Quarter: 2021Q3

REPORT INFORMATION
  Report Type: Spontaneous
  Country: US (occurrence: US)
  Receive Date: 20210819
  Receipt Date: 20210819
  Transmission Date: 20211014
  Serious: Yes (Hospitalization, Other)
  Sender: FDA-Public Use
  Company Number: US-AMGEN-USASP2021124538

PATIENT
  Age: 75 Year
  Sex: Female

DRUGS (1)
  1. REPATHA [Suspect]
     Active Substance: EVOLOCUMAB
     Indication: HYPERCHOLESTEROLAEMIA
     Dosage: 420 MILLIGRAM, QMO
     Route: 065

REACTIONS (10)
  - Blood test abnormal [Unknown]
  - Blood pressure increased [Unknown]
  - Gastric infection [Recovering/Resolving]
  - Cystitis [Unknown]
  - Injection site swelling [Unknown]
  - Vaginal infection [Recovering/Resolving]
  - Cardiac failure congestive [Unknown]
  - Chest pain [Unknown]
  - Haematochezia [Unknown]
  - Urinary tract infection [Recovering/Resolving]

NARRATIVE: CASE EVENT DATE: 2021
